FAERS Safety Report 24145433 (Version 2)
Quarter: 2024Q3

REPORT INFORMATION
  Report Type: Spontaneous
  Country: US (occurrence: US)
  Receive Date: 20240729
  Receipt Date: 20240905
  Transmission Date: 20241017
  Serious: Yes (Hospitalization, Other)
  Sender: NOVO NORDISK
  Company Number: US-NOVOPROD-1258476

PATIENT
  Age: 64 Year
  Sex: Male
  Weight: 104.04 kg

DRUGS (5)
  1. OZEMPIC [Suspect]
     Active Substance: SEMAGLUTIDE
     Dosage: 0.25 MG, QW (INTERMITTENT USE OVER 3 YEARS)
     Route: 058
     Dates: start: 202309, end: 20240524
  2. OZEMPIC [Suspect]
     Active Substance: SEMAGLUTIDE
     Indication: Product used for unknown indication
     Dosage: 0.25 MG, QW (INTERMEITTENT USE OVER 3 YEARS)
     Route: 058
     Dates: start: 20210614, end: 2022
  3. ALLOPURINOL [Concomitant]
     Active Substance: ALLOPURINOL
     Indication: Product used for unknown indication
     Dosage: 100 MG, QD
  4. PANTOPRAZOLE [Concomitant]
     Active Substance: PANTOPRAZOLE
     Indication: Product used for unknown indication
     Dosage: 40 MG, QD
  5. TAMSULOSIN [Concomitant]
     Active Substance: TAMSULOSIN
     Indication: Product used for unknown indication
     Dosage: 0.4 MG, QD

REACTIONS (5)
  - Pancreatic cyst [Recovered/Resolved]
  - Intraductal papillary mucinous neoplasm [Unknown]
  - Diverticulum intestinal [Unknown]
  - Renal cyst [Unknown]
  - Drug dose titration not performed [Recovered/Resolved]

NARRATIVE: CASE EVENT DATE: 20210614
